FAERS Safety Report 9375750 (Version 1)
Quarter: 2013Q2

REPORT INFORMATION
  Report Type: Spontaneous
  Country: IL (occurrence: IL)
  Receive Date: 20130628
  Receipt Date: 20130628
  Transmission Date: 20140414
  Serious: Yes (Other)
  Sender: FDA-Public Use
  Company Number: IL-BAXTER-2013BAX023403

PATIENT
  Age: 40 Year
  Sex: Male

DRUGS (2)
  1. ENDOXAN-1G [Suspect]
     Indication: FAMILIAL MEDITERRANEAN FEVER
  2. METHYLPREDNISOLONE [Suspect]
     Indication: FAMILIAL MEDITERRANEAN FEVER
     Route: 042

REACTIONS (2)
  - Pulmonary haemorrhage [Recovered/Resolved]
  - Drug ineffective [Unknown]
